FAERS Safety Report 24010709 (Version 1)
Quarter: 2024Q2

REPORT INFORMATION
  Report Type: Report from Study
  Country: US (occurrence: None)
  Receive Date: 20240625
  Receipt Date: 20240625
  Transmission Date: 20240716
  Serious: Yes (Other)
  Sender: FDA-Public Use
  Company Number: 2024A143493

PATIENT
  Sex: Female

DRUGS (1)
  1. LYNPARZA [Suspect]
     Active Substance: OLAPARIB
     Indication: Breast cancer female
     Route: 048
     Dates: start: 20240524

REACTIONS (8)
  - Thrombosis [Unknown]
  - Dysphagia [Unknown]
  - Ulcer [Unknown]
  - Asthma [Unknown]
  - Lung disorder [Unknown]
  - Peripheral swelling [Unknown]
  - Pain in extremity [Unknown]
  - Wrong technique in product usage process [Unknown]
